FAERS Safety Report 9870670 (Version 1)
Quarter: 2014Q1

REPORT INFORMATION
  Report Type: Spontaneous
  Country: US (occurrence: None)
  Receive Date: 20140204
  Receipt Date: 20140204
  Transmission Date: 20141002
  Serious: Yes (Other)
  Sender: FDA-Public Use
  Company Number: None

PATIENT
  Age: 58 Year
  Sex: Female
  Weight: 53.07 kg

DRUGS (3)
  1. PERCOCET [Suspect]
     Indication: RADICULITIS LUMBOSACRAL
  2. PERCOCET [Suspect]
     Indication: INTERVERTEBRAL DISC DISORDER
  3. PERCOCET [Suspect]
     Indication: MYELOPATHY

REACTIONS (1)
  - Drug ineffective [None]
